FAERS Safety Report 16704130 (Version 1)
Quarter: 2019Q3

REPORT INFORMATION
  Report Type: Spontaneous
  Country: IE (occurrence: IE)
  Receive Date: 20190814
  Receipt Date: 20190814
  Transmission Date: 20191004
  Serious: Yes (Life-Threatening)
  Sender: FDA-Public Use
  Company Number: IE-FRESENIUS KABI-FK201908981

PATIENT
  Age: 11 Week
  Sex: Male

DRUGS (1)
  1. XYLOCAINE [Suspect]
     Active Substance: LIDOCAINE HYDROCHLORIDE
     Indication: LOCAL ANAESTHESIA
     Dosage: UNKNOWN
     Route: 065

REACTIONS (1)
  - Toxicity to various agents [Recovered/Resolved]
